FAERS Safety Report 6566422-8 (Version None)
Quarter: 2010Q1

REPORT INFORMATION
  Report Type: 
  Country: None (occurrence: None)
  Receive Date: 20100202
  Receipt Date: 20100120
  Transmission Date: 20100710
  Serious: Yes (Other)
  Sender: FDA-Public Use
  Company Number: PHEH2009US14096

PATIENT
  Sex: Male

DRUGS (1)
  1. AREDIA [Suspect]
     Indication: HEAD AND NECK CANCER
     Dosage: UNK
     Dates: start: 20070101

REACTIONS (2)
  - PATHOLOGICAL FRACTURE [None]
  - SURGERY [None]
